FAERS Safety Report 6807794-6 (Version None)
Quarter: 2010Q2

REPORT INFORMATION
  Report Type: 
  Country: None (occurrence: None)
  Receive Date: 20100629
  Receipt Date: 20081231
  Transmission Date: 20101027
  Serious: Yes (Other)
  Sender: FDA-Public Use
  Company Number: US-PFIZER INC-2008100705

PATIENT
  Sex: Female

DRUGS (2)
  1. TIKOSYN [Suspect]
     Indication: ARRHYTHMIA
     Dosage: 250 UG, UNK
  2. TIKOSYN [Suspect]
     Dosage: 125 UG, UNK

REACTIONS (1)
  - ELECTROCARDIOGRAM QT PROLONGED [None]
